FAERS Safety Report 5699478-5 (Version None)
Quarter: 2008Q2

REPORT INFORMATION
  Report Type: 
  Country: None (occurrence: None)
  Receive Date: 20080410
  Receipt Date: 20080407
  Transmission Date: 20081010
  Serious: Yes (Other)
  Sender: FDA-Public Use
  Company Number: US-BAYER-200812646NA

PATIENT
  Age: 33 Year
  Sex: Female
  Weight: 77 kg

DRUGS (2)
  1. YAZ [Suspect]
     Indication: MENSTRUATION IRREGULAR
     Dates: start: 20071201, end: 20080123
  2. SYNTHROID [Concomitant]
     Indication: DRUG USE FOR UNKNOWN INDICATION

REACTIONS (3)
  - AFFECT LABILITY [None]
  - DEPRESSION SUICIDAL [None]
  - VAGINAL HAEMORRHAGE [None]
